FAERS Safety Report 23191566 (Version 1)
Quarter: 2023Q4

REPORT INFORMATION
  Report Type: Spontaneous
  Country: JP (occurrence: JP)
  Receive Date: 20231116
  Receipt Date: 20231116
  Transmission Date: 20240109
  Serious: No
  Sender: FDA-Public Use
  Company Number: JP-PFIZER INC-PV202300181857

PATIENT
  Sex: Female

DRUGS (1)
  1. ENBREL [Suspect]
     Active Substance: ETANERCEPT
     Dosage: 25 MG
     Route: 058

REACTIONS (5)
  - Wrong technique in device usage process [Unknown]
  - Injury associated with device [Recovered/Resolved]
  - Haemorrhage [Unknown]
  - Peripheral swelling [Unknown]
  - Product dose omission issue [Unknown]
